FAERS Safety Report 5156899-7 (Version None)
Quarter: 2006Q3

REPORT INFORMATION
  Report Type: 
  Country: None (occurrence: None)
  Receive Date: 20060918
  Receipt Date: 20060614
  Transmission Date: 20061208
  Serious: Yes (Hospitalization)
  Sender: FDA-Public Use
  Company Number: US-JNJFOC-20060603296

PATIENT
  Age: 44 Year
  Sex: Female
  Weight: 61.2356 kg

DRUGS (2)
  1. TOPAMAX [Suspect]
     Indication: CONVULSION
     Dosage: ORAL
     Route: 048
  2. FAMOTIDINE [Concomitant]

REACTIONS (2)
  - ASTHMA [None]
  - DYSARTHRIA [None]
